FAERS Safety Report 15670213 (Version 1)
Quarter: 2018Q4

REPORT INFORMATION
  Report Type: Spontaneous
  Country: AR (occurrence: AR)
  Receive Date: 20181129
  Receipt Date: 20181129
  Transmission Date: 20190205
  Serious: Yes (Hospitalization)
  Sender: FDA-Public Use
  Company Number: AR-MYLANLABS-2018M1088994

PATIENT
  Sex: Male

DRUGS (1)
  1. TOBRAMYCIN. [Suspect]
     Active Substance: TOBRAMYCIN
     Indication: EYE INFECTION BACTERIAL
     Dosage: 1 DOSAGE FORM, QD

REACTIONS (2)
  - Musculoskeletal discomfort [Unknown]
  - Off label use [Unknown]
